FAERS Safety Report 10163045 (Version 2)
Quarter: 2014Q2

REPORT INFORMATION
  Report Type: Spontaneous
  Country: DE (occurrence: DE)
  Receive Date: 20140509
  Receipt Date: 20140509
  Transmission Date: 20141212
  Serious: Yes (Life-Threatening)
  Sender: FDA-Public Use
  Company Number: GXKR2012DE002603

PATIENT
  Age: 69 Year
  Sex: Female
  Weight: 84 kg

DRUGS (4)
  1. CANDESARTAN+HYDROCHLOROTHIAZIDE [Suspect]
     Indication: HYPERTENSION
     Dosage: 1 DF WITH 16 MG CANDESARTAN AND 12.5 MG HCT, QD
     Route: 048
     Dates: start: 20120805, end: 20120813
  2. RAMIPRIL [Concomitant]
  3. ALDACTONE [Concomitant]
  4. DETRUSITOL RETARD [Concomitant]
     Dosage: 4 MG, QD
     Route: 048

REACTIONS (9)
  - Dyspnoea [Recovering/Resolving]
  - Pharyngeal oedema [Recovering/Resolving]
  - Eye swelling [Recovering/Resolving]
  - Rash [Unknown]
  - Erythema [Unknown]
  - Pruritus [Unknown]
  - Skin burning sensation [Unknown]
  - Blister [Unknown]
  - Dry mouth [Unknown]
